FAERS Safety Report 12963053 (Version 2)
Quarter: 2017Q1

REPORT INFORMATION
  Report Type: Report from Study
  Country: US (occurrence: US)
  Receive Date: 20161122
  Receipt Date: 20170103
  Transmission Date: 20170428
  Serious: No
  Sender: FDA-Public Use
  Company Number: US-ALEXION PHARMACEUTICALS INC.-A201608980

PATIENT
  Age: 58 Year
  Sex: Female
  Weight: 54.42 kg

DRUGS (1)
  1. STRENSIQ [Suspect]
     Active Substance: ASFOTASE ALFA
     Indication: HYPOPHOSPHATASIA
     Dosage: 5.2 ML, SIX TIMES/WEEK
     Route: 058
     Dates: start: 20160603

REACTIONS (3)
  - Therapeutic response unexpected [Not Recovered/Not Resolved]
  - Blood alkaline phosphatase abnormal [Unknown]
  - Weight increased [Recovered/Resolved]

NARRATIVE: CASE EVENT DATE: 201609
